FAERS Safety Report 10978623 (Version 1)
Quarter: 2015Q1

REPORT INFORMATION
  Report Type: Spontaneous
  Country: FR (occurrence: None)
  Receive Date: 20150331
  Receipt Date: 20150331
  Transmission Date: 20150721
  Serious: Yes (Other)
  Sender: FDA-Public Use
  Company Number: 8018458

PATIENT
  Age: 75 Year
  Sex: Female

DRUGS (2)
  1. SOYA-HISPIDA-UNSAPONIFIABLE FRACTION (GYLCINE) [Suspect]
     Active Substance: HYDROGENATED SOYBEAN OIL
     Indication: PRODUCT USED FOR UNKNOWN INDICATION
     Route: 048
     Dates: start: 201410, end: 201412
  2. LEVOTHYROX (LEVOTHYROXINE SODIUM) [Suspect]
     Active Substance: LEVOTHYROXINE SODIUM
     Indication: AUTOIMMUNE THYROIDITIS
     Dosage: 87.5 MCG (87.5 MCG, 1 IN 1 D)
     Route: 048
     Dates: start: 1989

REACTIONS (7)
  - Drug interaction [None]
  - Fatigue [None]
  - Tachyarrhythmia [None]
  - Depression [None]
  - Food interaction [None]
  - Hypothyroidism [None]
  - Pain in extremity [None]

NARRATIVE: CASE EVENT DATE: 2014
